FAERS Safety Report 16498223 (Version 1)
Quarter: 2019Q2

REPORT INFORMATION
  Report Type: Report from Study
  Country: None (occurrence: TR)
  Receive Date: 20190628
  Receipt Date: 20190628
  Transmission Date: 20190711
  Serious: Yes (Death)
  Sender: FDA-Public Use
  Company Number: TR-ABBVIE-19K-161-2837290-00

PATIENT
  Sex: Female
  Weight: 56 kg

DRUGS (6)
  1. DUODOPA [Suspect]
     Active Substance: CARBIDOPA\LEVODOPA
     Indication: PARKINSON^S DISEASE
     Dosage: MORNING DOSE (ML): 6,00 CONTINUOUS DOSE (ML): 2,20 EXTRA DOSE(ML): 1,00
     Route: 050
     Dates: start: 20171012
  2. DOMPERIDONE MALEATE [Concomitant]
     Active Substance: DOMPERIDONE MALEATE
     Indication: PARKINSON^S DISEASE
     Route: 048
     Dates: start: 2007
  3. ROPINIROLE. [Concomitant]
     Active Substance: ROPINIROLE
     Indication: PARKINSON^S DISEASE
     Route: 048
     Dates: start: 20171016
  4. PREGABALIN. [Concomitant]
     Active Substance: PREGABALIN
     Indication: BACK PAIN
     Route: 048
     Dates: start: 20171001
  5. CLONAZEPAM. [Concomitant]
     Active Substance: CLONAZEPAM
     Indication: PARKINSON^S DISEASE
     Route: 048
     Dates: start: 20171001
  6. QUETIAPINE. [Concomitant]
     Active Substance: QUETIAPINE
     Indication: PARKINSON^S DISEASE
     Route: 048
     Dates: start: 2016

REACTIONS (1)
  - Death [Fatal]

NARRATIVE: CASE EVENT DATE: 20190525
